FAERS Safety Report 17497800 (Version 1)
Quarter: 2020Q1

REPORT INFORMATION
  Report Type: Spontaneous
  Country: US (occurrence: US)
  Receive Date: 20200304
  Receipt Date: 20200304
  Transmission Date: 20200409
  Serious: No
  Sender: FDA-Public Use
  Company Number: US-GALDERMA-US19055114

PATIENT
  Age: 30 Year
  Sex: Female

DRUGS (10)
  1. PROACTIV MD DAILY OIL CONTROL SPF 30 [Suspect]
     Active Substance: AVOBENZONE\OCTISALATE\OCTOCRYLENE
     Indication: ACNE
  2. PROACTIV GREEN TEA MOISTURIZER [Concomitant]
     Active Substance: COSMETICS
     Indication: ACNE
  3. PROACTIV MD ADAPALENE ACNE TREATMENT [Suspect]
     Active Substance: ADAPALENE
     Indication: SCAR
     Dosage: 0.1%
     Route: 061
     Dates: start: 20190620, end: 20190820
  4. PROACTIV GREEN TEA MOISTURIZER [Concomitant]
     Active Substance: COSMETICS
     Indication: SCAR
     Route: 061
     Dates: start: 20190620, end: 20190820
  5. PROACTIV MD ADAPALENE ACNE TREATMENT [Suspect]
     Active Substance: ADAPALENE
     Indication: ACNE
  6. PROACTIV MD DEEP CLEANSING FACE WASH [Concomitant]
     Active Substance: COSMETICS
     Indication: SCAR
     Route: 061
     Dates: start: 20190620, end: 20190820
  7. PROACTIV MD DEEP CLEANSING FACE WASH [Concomitant]
     Active Substance: COSMETICS
     Indication: ACNE
  8. PROACTIV AMAZONIAN CLAY MASK [Concomitant]
     Indication: ACNE
  9. PROACTIV MD DAILY OIL CONTROL SPF 30 [Suspect]
     Active Substance: AVOBENZONE\OCTISALATE\OCTOCRYLENE
     Indication: SCAR
     Route: 061
     Dates: start: 20190620, end: 20190820
  10. PROACTIV AMAZONIAN CLAY MASK [Concomitant]
     Indication: SCAR
     Route: 061
     Dates: start: 20190620, end: 20190820

REACTIONS (4)
  - Product use in unapproved indication [Recovered/Resolved]
  - Skin burning sensation [Recovering/Resolving]
  - Skin irritation [Recovering/Resolving]
  - Sensitive skin [Recovering/Resolving]

NARRATIVE: CASE EVENT DATE: 20190620
